FAERS Safety Report 5524406-2 (Version None)
Quarter: 2007Q4

REPORT INFORMATION
  Report Type: 
  Country: None (occurrence: None)
  Receive Date: 20071121
  Receipt Date: 20071113
  Transmission Date: 20080405
  Serious: Yes (Other)
  Sender: FDA-Public Use
  Company Number: US-PFIZER INC-2007097096

PATIENT
  Age: 71 Year
  Sex: Female

DRUGS (2)
  1. CHANTIX [Suspect]
  2. CHOLESTEROL- AND TRIGLYCERIDE REDUCERS [Suspect]

REACTIONS (4)
  - ABNORMAL DREAMS [None]
  - INSOMNIA [None]
  - LIVER DISORDER [None]
  - POLLAKIURIA [None]
